FAERS Safety Report 8175327-0 (Version None)
Quarter: 2012Q1

REPORT INFORMATION
  Report Type: 
  Country: None (occurrence: None)
  Receive Date: 20120229
  Receipt Date: 20120228
  Transmission Date: 20120608
  Serious: Yes (Life-Threatening, Hospitalization)
  Sender: FDA-Public Use
  Company Number: PHHY2012ES017014

PATIENT
  Age: 64 Year
  Sex: Male

DRUGS (6)
  1. AMLODIPINE [Concomitant]
     Dosage: UNK UKN, UNK
  2. OMEPRAZOLE [Concomitant]
     Dosage: UNK UKN, UNK
  3. PROGRAF [Suspect]
     Indication: RENAL TRANSPLANT
     Dosage: 1.5 MG DAILY
     Route: 048
     Dates: start: 20110301
  4. DOXAZOSIN [Concomitant]
     Dosage: UNK UKN, UNK
  5. MYFORTIC [Suspect]
     Indication: RENAL TRANSPLANT
     Dosage: 720 MG, UNK
     Route: 048
     Dates: start: 20110301, end: 20110722
  6. PREDNISONE TAB [Concomitant]
     Dosage: UNK UKN, UNK

REACTIONS (3)
  - NEUTROPENIA [None]
  - BLOOD CREATININE INCREASED [None]
  - AGRANULOCYTOSIS [None]
